FAERS Safety Report 7565071-2 (Version None)
Quarter: 2011Q2

REPORT INFORMATION
  Report Type: 
  Country: None (occurrence: None)
  Receive Date: 20110622
  Receipt Date: 20110429
  Transmission Date: 20111010
  Serious: Yes (Death)
  Sender: FDA-Public Use
  Company Number: US-MYLANLABS-2011S1008981

PATIENT
  Age: 55 Year
  Sex: Female

DRUGS (15)
  1. CLOZAPINE [Suspect]
     Route: 048
     Dates: start: 20040101
  2. DOCUSATE [Concomitant]
  3. ENABLEX [Concomitant]
  4. VITAMIN B-12 [Concomitant]
  5. SIMVASTATIN [Concomitant]
  6. ALENDRONATE SODIUM [Concomitant]
  7. ADVAIR DISKUS 100/50 [Concomitant]
  8. OMEPRAZOLE [Concomitant]
  9. ALBUTEROL SULFATE AUTOHALER [Concomitant]
  10. FLUOXETINE HCL [Concomitant]
  11. LISINOPRIL [Concomitant]
  12. LAMOTRIGINE [Concomitant]
  13. ZETIA [Concomitant]
  14. VITAMIN D [Concomitant]
  15. FLONASE [Concomitant]

REACTIONS (1)
  - INTESTINAL OBSTRUCTION [None]
